FAERS Safety Report 23309582 (Version 1)
Quarter: 2023Q4

REPORT INFORMATION
  Report Type: Spontaneous
  Country: PL (occurrence: PL)
  Receive Date: 20231218
  Receipt Date: 20231218
  Transmission Date: 20240110
  Serious: Yes (Other)
  Sender: FDA-Public Use
  Company Number: None

PATIENT
  Age: 66 Year
  Sex: Male
  Weight: 84 kg

DRUGS (4)
  1. IRINOTECAN [Suspect]
     Active Substance: IRINOTECAN
     Indication: Colon cancer
     Dosage: CAMPTO PFIZER 100MG
     Route: 042
     Dates: start: 20190402, end: 20190402
  2. FLUOROURACIL [Suspect]
     Active Substance: FLUOROURACIL
     Indication: Colon cancer
     Dosage: FLUOROURACIL MEDAC 5000MG
     Route: 042
     Dates: start: 20190402, end: 20190402
  3. FLUOROURACIL [Suspect]
     Active Substance: FLUOROURACIL
     Dosage: FLUOROURACIL MEDAC 5000MG
     Route: 042
     Dates: start: 20190402, end: 20190402
  4. LEVOLEUCOVORIN [Concomitant]
     Active Substance: LEVOLEUCOVORIN
     Dosage: LEVOFOLIC 200MG

REACTIONS (2)
  - Neuropathy peripheral [Recovering/Resolving]
  - Asthenia [Recovering/Resolving]

NARRATIVE: CASE EVENT DATE: 20190423
